FAERS Safety Report 4321867-1 (Version None)
Quarter: 2004Q1

REPORT INFORMATION
  Report Type: 
  Country: None (occurrence: None)
  Receive Date: 20040322
  Receipt Date: 20031217
  Transmission Date: 20041129
  Serious: Yes (Other)
  Sender: FDA-Public Use
  Company Number: A-US2003-03585

PATIENT
  Age: 64 Year
  Sex: Female

DRUGS (3)
  1. TRACLEER [Suspect]
     Indication: PULMONARY HYPERTENSION
     Dosage: 62.5 MG, BID, ORAL; 125 MG, BID, ORAL
     Route: 048
     Dates: start: 20030710, end: 20030806
  2. TRACLEER [Suspect]
     Indication: PULMONARY HYPERTENSION
     Dosage: 62.5 MG, BID, ORAL; 125 MG, BID, ORAL
     Route: 048
     Dates: start: 20030806, end: 20031015
  3. LIPITOR [Suspect]
     Dosage: 10 MG, UNK, UNK

REACTIONS (5)
  - ALANINE AMINOTRANSFERASE INCREASED [None]
  - ASPARTATE AMINOTRANSFERASE INCREASED [None]
  - BLOOD ALKALINE PHOSPHATASE INCREASED [None]
  - FATIGUE [None]
  - LIVER FUNCTION TEST ABNORMAL [None]
